FAERS Safety Report 8207633-5 (Version None)
Quarter: 2012Q1

REPORT INFORMATION
  Report Type: 
  Country: None (occurrence: None)
  Receive Date: 20120314
  Receipt Date: 20120309
  Transmission Date: 20120608
  Serious: Yes (Other)
  Sender: FDA-Public Use
  Company Number: US-BAYER-2012-009525

PATIENT
  Age: 51 Year
  Sex: Female
  Weight: 60 kg

DRUGS (6)
  1. BETASERON [Suspect]
     Dosage: 8 MIU, QOD
     Route: 058
     Dates: start: 20120112
  2. TYSABRI [Concomitant]
     Dosage: UNK
     Dates: start: 20080101, end: 20120101
  3. OXYBUTYNIN [Concomitant]
     Dosage: 5 MG, BID
  4. MOTRIN [Concomitant]
  5. BACLOFEN [Concomitant]
     Indication: MUSCLE SPASMS
     Dosage: 20 MG, QID
  6. BETASERON [Suspect]
     Indication: RELAPSING-REMITTING MULTIPLE SCLEROSIS
     Dosage: UNK
     Route: 058
     Dates: start: 19950423, end: 20090801

REACTIONS (1)
  - BLADDER SQUAMOUS CELL CARCINOMA STAGE UNSPECIFIED [None]
